FAERS Safety Report 7812615-9 (Version None)
Quarter: 2011Q4

REPORT INFORMATION
  Report Type: 
  Country: None (occurrence: None)
  Receive Date: 20111011
  Receipt Date: 20111006
  Transmission Date: 20120403
  Serious: Yes (Hospitalization, Other)
  Sender: FDA-Public Use
  Company Number: 201111198

PATIENT
  Age: 4 Year
  Sex: Male

DRUGS (1)
  1. LIORESAL [Suspect]
     Indication: MUSCLE SPASTICITY
     Dosage: MCG, DAILY, INTRATHECAL
     Route: 037

REACTIONS (6)
  - IMPLANT SITE EFFUSION [None]
  - ABDOMINAL PAIN [None]
  - INTRACRANIAL PRESSURE INCREASED [None]
  - URINARY TRACT INFECTION [None]
  - VOMITING [None]
  - PNEUMONIA [None]
